FAERS Safety Report 16702681 (Version 1)
Quarter: 2019Q4

REPORT INFORMATION
  Report Type: Spontaneous
  Country: US (occurrence: US)
  Receive Date: 20190813
  Receipt Date: 20190813
  Transmission Date: 20200122
  Serious: No
  Sender: FDA-Public Use
  Company Number: None

PATIENT
  Age: 22 Year
  Sex: Female
  Weight: 105.75 kg

DRUGS (5)
  1. BIOTIN [Concomitant]
     Active Substance: BIOTIN
  2. WOMEN^S MULTIVITAMIN [Concomitant]
  3. METFORMIN ER [Concomitant]
     Active Substance: METFORMIN HYDROCHLORIDE
  4. OXYBUTYNIN ER [Concomitant]
     Active Substance: OXYBUTYNIN
  5. DETROL LA [Suspect]
     Active Substance: TOLTERODINE TARTRATE
     Indication: HYPERTONIC BLADDER
     Dosage: ?          QUANTITY:30 CAPSULE(S);?
     Route: 048
     Dates: start: 20190709, end: 20190711

REACTIONS (7)
  - Dizziness [None]
  - Pyrexia [None]
  - Paraesthesia [None]
  - Somnolence [None]
  - Chills [None]
  - Fatigue [None]
  - Dysstasia [None]

NARRATIVE: CASE EVENT DATE: 20190711
